FAERS Safety Report 8888882 (Version 1)
Quarter: 2012Q4

REPORT INFORMATION
  Report Type: 
  Country: US (occurrence: US)
  Receive Date: 20121106
  Receipt Date: 20121106
  Transmission Date: 20130627
  Serious: Yes (Other)
  Sender: FDA-Public Use
  Company Number: PHEH2012US020350

PATIENT
  Age: 67 Year
  Sex: Female
  Weight: 63.49 kg

DRUGS (12)
  1. GILENYA [Suspect]
     Indication: MULTIPLE SCLEROSIS
     Dosage: 0.5 mg, QD
     Route: 048
  2. NORVASC [Concomitant]
  3. PROVIGIL [Concomitant]
  4. OMEPRAZOLE [Concomitant]
  5. XANAX [Concomitant]
  6. VITAMIN D [Concomitant]
  7. VITAMIN B COMPLEX [Concomitant]
  8. OMEGA 3 [Concomitant]
  9. HYDROCHLOROTHIAZIDE [Concomitant]
  10. ZOCOR [Concomitant]
  11. DIOVAN [Concomitant]
  12. AMLODIPINE [Concomitant]

REACTIONS (5)
  - Meniscus injury [Unknown]
  - Joint stiffness [Unknown]
  - Arthralgia [Unknown]
  - Nausea [Unknown]
  - Fatigue [Unknown]
